FAERS Safety Report 7495437-0 (Version None)
Quarter: 2011Q2

REPORT INFORMATION
  Report Type: 
  Country: None (occurrence: None)
  Receive Date: 20110523
  Receipt Date: 20110429
  Transmission Date: 20111010
  Serious: No
  Sender: FDA-Public Use
  Company Number: US-TYCO HEALTHCARE/MALLINCKRODT-T201100854

PATIENT
  Sex: Female

DRUGS (4)
  1. FLEXERIL [Concomitant]
     Dosage: UNK
  2. CORTIZONE                          /00028601/ [Concomitant]
     Dosage: 1 Q 6 MONTHS
  3. FENTANYL-100 [Suspect]
     Indication: BACK PAIN
     Dosage: 75 UG/HR Q72 HOURS
     Route: 062
     Dates: start: 20110325
  4. PERCOCET [Concomitant]
     Indication: PAIN
     Dosage: 7.5/325 MG Q 4-6 HRS
     Route: 048
     Dates: start: 20070101

REACTIONS (1)
  - DRUG INEFFECTIVE [None]
